FAERS Safety Report 9985317 (Version 1)
Quarter: 2014Q1

REPORT INFORMATION
  Report Type: Report from Study
  Country: US (occurrence: US)
  Receive Date: 20140307
  Receipt Date: 20140307
  Transmission Date: 20141002
  Serious: No
  Sender: FDA-Public Use
  Company Number: US-ABBVIE-14P-163-1185745-00

PATIENT
  Age: 54 Year
  Sex: Male

DRUGS (4)
  1. HUMIRA [Suspect]
     Indication: PSORIASIS
     Dates: start: 20131120
  2. LISINOPRIL [Concomitant]
     Indication: HYPERTENSION
  3. HCTZ [Concomitant]
     Indication: HYPERTENSION
  4. ASPIRIN [Concomitant]
     Indication: PAIN

REACTIONS (3)
  - Feeling cold [Recovered/Resolved]
  - Hot flush [Recovered/Resolved]
  - Back pain [Recovered/Resolved]
